FAERS Safety Report 18436656 (Version 1)
Quarter: 2020Q4

REPORT INFORMATION
  Report Type: Spontaneous
  Country: NG (occurrence: NG)
  Receive Date: 20201028
  Receipt Date: 20201028
  Transmission Date: 20210114
  Serious: No
  Sender: FDA-Public Use
  Company Number: NG-LUPIN PHARMACEUTICALS INC.-2020-05580

PATIENT
  Age: 37 Year
  Sex: Female

DRUGS (2)
  1. NIFEDIPINE. [Suspect]
     Active Substance: NIFEDIPINE
     Indication: TOCOLYSIS
     Dosage: UNK
     Route: 048
     Dates: start: 2020
  2. POTASSIUM [Suspect]
     Active Substance: POTASSIUM
     Indication: HYPOKALAEMIA
     Dosage: UNK (FORMULATION: INFUSION)
     Route: 051
     Dates: start: 2020

REACTIONS (1)
  - Exposure during pregnancy [Unknown]

NARRATIVE: CASE EVENT DATE: 2020
